FAERS Safety Report 16476662 (Version 1)
Quarter: 2019Q2

REPORT INFORMATION
  Report Type: Spontaneous
  Country: US (occurrence: US)
  Receive Date: 20190626
  Receipt Date: 20190626
  Transmission Date: 20190711
  Serious: No
  Sender: FDA-Public Use
  Company Number: US-TAKEDA-2019TUS039708

PATIENT
  Sex: Male

DRUGS (1)
  1. NINLARO [Suspect]
     Active Substance: IXAZOMIB CITRATE
     Indication: PLASMA CELL MYELOMA
     Dosage: 4 MILLIGRAM
     Route: 048
     Dates: start: 20131015

REACTIONS (6)
  - Nausea [Unknown]
  - Ocular hyperaemia [Unknown]
  - Eye swelling [Unknown]
  - Dysgeusia [Unknown]
  - Decreased appetite [Unknown]
  - Fatigue [Unknown]
